FAERS Safety Report 6248892-8 (Version None)
Quarter: 2009Q2

REPORT INFORMATION
  Report Type: 
  Country: None (occurrence: None)
  Receive Date: 20090629
  Receipt Date: 20090617
  Transmission Date: 20091009
  Serious: Yes (Other)
  Sender: FDA-Public Use
  Company Number: JP-PFIZER INC-2009224403

PATIENT
  Age: 75 Year

DRUGS (1)
  1. ZITHROMAC SR [Suspect]
     Indication: CHRONIC OBSTRUCTIVE PULMONARY DISEASE
     Dosage: 2000 MG, SINGLE
     Route: 048
     Dates: start: 20090602, end: 20090602

REACTIONS (1)
  - RHABDOMYOLYSIS [None]
